FAERS Safety Report 8570412-3 (Version None)
Quarter: 2012Q3

REPORT INFORMATION
  Report Type: 
  Country: None (occurrence: None)
  Receive Date: 20120803
  Receipt Date: 20120503
  Transmission Date: 20120928
  Serious: No
  Sender: FDA-Public Use
  Company Number: US-ABBOTT-12P-163-0932274-00

PATIENT
  Sex: Male

DRUGS (9)
  1. VYTORIN [Concomitant]
     Indication: PRODUCT USED FOR UNKNOWN INDICATION
     Dosage: AT BEDTIME
     Route: 048
     Dates: start: 20120502, end: 20120502
  2. PLAVIX [Concomitant]
     Indication: PRODUCT USED FOR UNKNOWN INDICATION
     Dosage: IN THE MORNING
     Route: 048
     Dates: start: 20120503
  3. METOPROLOL TARTRATE [Concomitant]
     Dosage: 1/2 TAB IN THE MORNING
     Route: 048
     Dates: start: 20120503
  4. WELLBUTRIN [Concomitant]
     Indication: PRODUCT USED FOR UNKNOWN INDICATION
     Dosage: AT BEDTIME
     Route: 048
     Dates: start: 20120502, end: 20120502
  5. NIASPAN [Suspect]
     Indication: PRODUCT USED FOR UNKNOWN INDICATION
     Dosage: AT BEDTIME
     Route: 048
     Dates: start: 20120502
  6. UNKNOWN MEDICATIONS [Concomitant]
     Dates: start: 20120503
  7. AMBIEN [Concomitant]
     Indication: PRODUCT USED FOR UNKNOWN INDICATION
     Dosage: AT BEDTIME
     Route: 048
     Dates: start: 20120502, end: 20120502
  8. METOPROLOL TARTRATE [Concomitant]
     Indication: PRODUCT USED FOR UNKNOWN INDICATION
     Dosage: 1/2 TAB AT BEDTIME
     Route: 048
     Dates: start: 20120502, end: 20120502
  9. UNKNOWN MEDICATIONS [Concomitant]
     Indication: PRODUCT USED FOR UNKNOWN INDICATION
     Dates: start: 20120502, end: 20120502

REACTIONS (7)
  - SYNCOPE [None]
  - FALL [None]
  - CHILLS [None]
  - LOSS OF CONSCIOUSNESS [None]
  - JOINT INJURY [None]
  - HEAD INJURY [None]
  - HYPOTENSION [None]
